FAERS Safety Report 6256919-2 (Version None)
Quarter: 2009Q3

REPORT INFORMATION
  Report Type: 
  Country: None (occurrence: None)
  Receive Date: 20090706
  Receipt Date: 20090625
  Transmission Date: 20100115
  Serious: Yes (Other)
  Sender: FDA-Public Use
  Company Number: PHHY2009CA20550

PATIENT
  Sex: Female

DRUGS (13)
  1. DIOVAN HCT [Suspect]
     Indication: HYPERTENSION
     Dosage: TABLET (160/12.5) DAILY
     Route: 048
     Dates: start: 20021226, end: 20090507
  2. ACETAMINOPHEN [Concomitant]
     Dosage: 325, AS NEEDED
  3. COUMADIN [Concomitant]
  4. ALVESCO [Concomitant]
     Dosage: 2 PUFFS AT BED TIME.
  5. ASAPHEN [Concomitant]
  6. ATIVAN [Concomitant]
     Dosage: ONCE IN NIGHT (1 HS)
  7. DIABETA [Concomitant]
     Dosage: 2.5 BID
  8. GLUCOPHAGE [Concomitant]
     Dosage: 850 TWICE DAILY (BID)
  9. LIPITOR [Concomitant]
     Dosage: 10 DAILY
  10. PANTOPRAZOLE SODIUM [Concomitant]
     Dosage: 80
  11. PAXIL [Concomitant]
     Dosage: 30 DAILY
  12. TIAZAC [Concomitant]
     Dosage: 180 DAILY
  13. VENTOLIN [Concomitant]
     Dosage: 1INH, QID AS NEEDED (PRN)

REACTIONS (2)
  - BLOOD PRESSURE DECREASED [None]
  - CATARACT OPERATION [None]
